FAERS Safety Report 19411557 (Version 6)
Quarter: 2022Q3

REPORT INFORMATION
  Report Type: Spontaneous
  Country: JP (occurrence: JP)
  Receive Date: 20210614
  Receipt Date: 20220714
  Transmission Date: 20221027
  Serious: Yes (Other)
  Sender: FDA-Public Use
  Company Number: JP-GLAXOSMITHKLINE-JP2021JPN123888

PATIENT

DRUGS (15)
  1. TRELEGY ELLIPTA [Suspect]
     Active Substance: FLUTICASONE FUROATE\UMECLIDINIUM BROMIDE\VILANTEROL TRIFENATATE
     Indication: Chronic obstructive pulmonary disease
     Dosage: 100 ?G, QD, 1 INHALATION PER DOSE IN THE MORNING
     Route: 055
     Dates: start: 20190604, end: 2021
  2. FLUTICASONE FUROATE\VILANTEROL TRIFENATATE [Concomitant]
     Active Substance: FLUTICASONE FUROATE\VILANTEROL TRIFENATATE
     Indication: Chronic obstructive pulmonary disease
     Dosage: UNK
  3. SILODOSIN OD [Concomitant]
     Indication: Dysuria
     Dosage: 4 MG
  4. THEOPHYLLINE [Concomitant]
     Active Substance: THEOPHYLLINE
     Indication: Bronchial obstruction
     Dosage: 200 MG
     Route: 048
     Dates: start: 20161227, end: 20210406
  5. FAMOTIDINE [Concomitant]
     Active Substance: FAMOTIDINE
     Indication: Gastric disorder
     Dosage: 20 MG
     Route: 048
     Dates: start: 20161227, end: 20210406
  6. FUDOSTEINE [Concomitant]
     Active Substance: FUDOSTEINE
     Indication: Productive cough
     Dosage: 800 MG
     Route: 048
     Dates: start: 20180501, end: 20210406
  7. FUROSEMIDE [Concomitant]
     Active Substance: FUROSEMIDE
     Indication: Oedema
  8. BROTIZOLAM [Concomitant]
     Active Substance: BROTIZOLAM
     Indication: Insomnia
     Dosage: 0.125 MG
     Route: 048
     Dates: start: 20210501
  9. ONGLYZA [Concomitant]
     Active Substance: SAXAGLIPTIN HYDROCHLORIDE
     Indication: Diabetes mellitus
     Dosage: 2.5 MG
     Route: 048
     Dates: start: 20190604
  10. AMLODIPINE [Concomitant]
     Active Substance: AMLODIPINE BESYLATE
     Indication: Hypertension
     Dosage: 5 MG
     Route: 048
     Dates: start: 20161129
  11. BENZBROMARONE [Concomitant]
     Active Substance: BENZBROMARONE
     Indication: Hyperuricaemia
     Dosage: 50 MG
     Route: 048
     Dates: start: 20161129
  12. PIOGLITAZONE HYDROCHLORIDE [Concomitant]
     Active Substance: PIOGLITAZONE HYDROCHLORIDE
     Indication: Diabetes mellitus
     Dosage: 15 MG
     Route: 048
     Dates: start: 20181106
  13. LOTRIGA GRANULAR CAPSULE [Concomitant]
     Indication: Hyperlipidaemia
     Dosage: UNK
     Route: 048
     Dates: start: 20161129
  14. CARTEOLOL HYDROCHLORIDE\LATANOPROST [Concomitant]
     Active Substance: CARTEOLOL HYDROCHLORIDE\LATANOPROST
     Indication: Glaucoma
     Dosage: UNK
     Route: 061
     Dates: start: 20180130
  15. LATANOPROST [Concomitant]
     Active Substance: LATANOPROST
     Indication: Glaucoma
     Dosage: UNK
     Route: 061
     Dates: start: 20180501

REACTIONS (2)
  - Urinary retention [Recovered/Resolved]
  - Dysuria [Unknown]

NARRATIVE: CASE EVENT DATE: 20210608
